FAERS Safety Report 4489110-0 (Version None)
Quarter: 2004Q4

REPORT INFORMATION
  Report Type: 
  Country: None (occurrence: None)
  Receive Date: 20041029
  Receipt Date: 20041019
  Transmission Date: 20050328
  Serious: Yes (Hospitalization)
  Sender: FDA-Public Use
  Company Number: IT-ROCHE-384163

PATIENT
  Age: 24 Year
  Sex: Male

DRUGS (2)
  1. ISOTRETINOIN [Suspect]
     Indication: SCLERODERMA
     Route: 065
  2. D-PENICILLAMINE [Concomitant]
     Indication: SCLERODERMA

REACTIONS (12)
  - BODY TEMPERATURE INCREASED [None]
  - CONFUSIONAL STATE [None]
  - CONVULSION [None]
  - DYSARTHRIA [None]
  - GRAND MAL CONVULSION [None]
  - INDURATION [None]
  - LOSS OF CONSCIOUSNESS [None]
  - MEMORY IMPAIRMENT [None]
  - MUSCLE CONTRACTURE [None]
  - RASH PAPULAR [None]
  - SCLERODERMA [None]
  - VISUAL DISTURBANCE [None]
